FAERS Safety Report 10632995 (Version 1)
Quarter: 2014Q4

REPORT INFORMATION
  Report Type: Spontaneous
  Country: US (occurrence: US)
  Receive Date: 20141205
  Receipt Date: 20141205
  Transmission Date: 20150529
  Serious: No
  Sender: FDA-Public Use
  Company Number: US-BRISTOL-MYERS SQUIBB COMPANY-20637914

PATIENT
  Age: 68 Year
  Sex: Male

DRUGS (3)
  1. APIXABAN [Suspect]
     Active Substance: APIXABAN
     Route: 048
  2. RITUXIMAB [Suspect]
     Active Substance: RITUXIMAB
  3. ATENOLOL TABS [Suspect]
     Active Substance: ATENOLOL
     Route: 048

REACTIONS (1)
  - Drug hypersensitivity [Unknown]
